FAERS Safety Report 8169550-9 (Version None)
Quarter: 2012Q1

REPORT INFORMATION
  Report Type: 
  Country: None (occurrence: None)
  Receive Date: 20120104
  Receipt Date: 20111205
  Transmission Date: 20120608
  Serious: No
  Sender: FDA-Public Use
  Company Number: 2011HGS-002726

PATIENT
  Age: 46 Year
  Sex: Male
  Weight: 154.223 kg

DRUGS (8)
  1. ALLOPURINOL [Concomitant]
  2. AMBIEN (ZOLPIDEM) (ZOLPIDEM) [Concomitant]
  3. SIMVASTATIN [Concomitant]
  4. ASPIRIN [Concomitant]
  5. BENLYSTA [Suspect]
     Indication: SYSTEMIC LUPUS ERYTHEMATOSUS
     Dosage: 1 IN 28 D, INTRAVENOUS DRIP
     Route: 041
     Dates: start: 20110817
  6. PLAQUENIL (HYDROXYCHLOROQUINE SULFATE) (HYDROXYCHLOROQUINE SULFATE) [Concomitant]
  7. CELLCEPT (MYCOPHENOLATE MOFETIL) (MYCOPHENOLATE MOFEITL) [Concomitant]
  8. XANAX [Concomitant]

REACTIONS (6)
  - HEADACHE [None]
  - NASAL CONGESTION [None]
  - LIBIDO DECREASED [None]
  - DEPRESSION [None]
  - DYSPNOEA [None]
  - ANXIETY [None]
